FAERS Safety Report 8634300 (Version 3)
Quarter: 2012Q4

REPORT INFORMATION
  Report Type: 
  Country: US (occurrence: US)
  Receive Date: 20120626
  Receipt Date: 20121012
  Transmission Date: 20130627
  Serious: Yes (Other)
  Sender: FDA-Public Use
  Company Number: US-ELI_LILLY_AND_COMPANY-US201205000155

PATIENT
  Age: 65 Year
  Sex: Female
  Weight: 139.68 kg

DRUGS (10)
  1. HUMULIN NPH [Suspect]
     Indication: TYPE 2 DIABETES MELLITUS
     Dosage: 80 u, each morning
     Dates: start: 20111102
  2. HUMULIN NPH [Suspect]
     Dosage: 80 u, at lunch
     Dates: start: 2011
  3. HUMULIN NPH [Suspect]
     Dosage: 65 u, at night
     Dates: start: 2011
  4. HUMULIN NPH [Suspect]
     Dosage: 90 u, tid
  5. AMITRIPTYLINE [Concomitant]
     Dosage: UNK
     Dates: start: 201204
  6. BUSPAR [Concomitant]
     Dosage: UNK
     Dates: start: 201204
  7. ISOSORBIDE [Concomitant]
     Dosage: UNK
     Dates: start: 201204
  8. LISINOPRIL [Concomitant]
     Dosage: UNK
     Dates: start: 201204
  9. METOPROLOL [Concomitant]
     Dosage: UNK
     Dates: start: 201203
  10. METOLAZONE [Concomitant]
     Dosage: UNK

REACTIONS (8)
  - Weight increased [Recovered/Resolved]
  - Dyspnoea [Recovered/Resolved]
  - Pruritus [Recovered/Resolved]
  - Periarthritis [Recovered/Resolved]
  - Musculoskeletal disorder [Recovered/Resolved]
  - Oedema peripheral [Recovered/Resolved]
  - Increased appetite [Recovered/Resolved]
  - Blood glucose increased [Recovered/Resolved]
